FAERS Safety Report 10458702 (Version 3)
Quarter: 2014Q4

REPORT INFORMATION
  Report Type: Spontaneous
  Country: US (occurrence: US)
  Receive Date: 20140917
  Receipt Date: 20141104
  Transmission Date: 20150528
  Serious: Yes (Other)
  Sender: FDA-Public Use
  Company Number: US-JNJFOC-20140908096

PATIENT
  Sex: Female
  Weight: 61.24 kg

DRUGS (2)
  1. RISPERDAL CONSTA [Suspect]
     Active Substance: RISPERIDONE
     Indication: SCHIZOPHRENIA
     Route: 030
  2. RISPERDAL [Suspect]
     Active Substance: RISPERIDONE
     Indication: SCHIZOPHRENIA
     Route: 048
     Dates: start: 1995

REACTIONS (19)
  - Oxygen saturation decreased [Unknown]
  - Inappropriate schedule of drug administration [Unknown]
  - Retinal vein occlusion [Unknown]
  - Dementia Alzheimer^s type [Not Recovered/Not Resolved]
  - Cataract [Unknown]
  - Blood glucose increased [Unknown]
  - Blood pressure increased [Recovered/Resolved]
  - Malaise [Not Recovered/Not Resolved]
  - Haemorrhage [Unknown]
  - Weight increased [Not Recovered/Not Resolved]
  - Adverse event [Unknown]
  - Malaise [Unknown]
  - Fall [Unknown]
  - Ocular neoplasm [Not Recovered/Not Resolved]
  - Glaucoma [Unknown]
  - Abdominal pain upper [Unknown]
  - Hypersensitivity [Unknown]
  - Breast enlargement [Unknown]
  - Oesophageal disorder [Recovering/Resolving]
